FAERS Safety Report 9537397 (Version 2)
Quarter: 2013Q3

REPORT INFORMATION
  Report Type: Spontaneous
  Country: FR (occurrence: FR)
  Receive Date: 20130919
  Receipt Date: 20130919
  Transmission Date: 20140515
  Serious: Yes (Other)
  Sender: FDA-Public Use
  Company Number: PHHY2013FR073387

PATIENT
  Sex: Female

DRUGS (4)
  1. EXJADE [Suspect]
     Indication: SICKLE CELL ANAEMIA
     Dosage: UNK
     Route: 048
  2. MINIDRIL [Interacting]
     Indication: CONTRACEPTION
     Dosage: UNK
     Route: 048
  3. CERAZETTE [Interacting]
     Indication: CONTRACEPTION
     Dosage: UNK
     Route: 048
  4. SPECIAFOLDINE [Concomitant]
     Dosage: UNK UKN, UNK

REACTIONS (4)
  - Premature delivery [Unknown]
  - Pre-eclampsia [Unknown]
  - Drug interaction [Unknown]
  - Maternal exposure during pregnancy [Unknown]
